FAERS Safety Report 20844246 (Version 3)
Quarter: 2022Q2

REPORT INFORMATION
  Report Type: Report from Study
  Country: CN (occurrence: CN)
  Receive Date: 20220518
  Receipt Date: 20220525
  Transmission Date: 20220721
  Serious: Yes (Hospitalization, Other)
  Sender: FDA-Public Use
  Company Number: CN-BIOGEN-2022BI01122450

PATIENT
  Age: 4 Year
  Sex: Male
  Weight: 14 kg

DRUGS (4)
  1. SPINRAZA [Suspect]
     Active Substance: NUSINERSEN
     Indication: Spinal muscular atrophy
     Route: 037
     Dates: start: 20220111
  2. SPINRAZA [Suspect]
     Active Substance: NUSINERSEN
     Route: 037
     Dates: start: 20220125
  3. SPINRAZA [Suspect]
     Active Substance: NUSINERSEN
     Route: 037
     Dates: start: 20220209
  4. SPINRAZA [Suspect]
     Active Substance: NUSINERSEN
     Route: 037
     Dates: start: 20220315

REACTIONS (7)
  - Myocardial injury [Not Recovered/Not Resolved]
  - Respiratory acidosis [Not Recovered/Not Resolved]
  - Pneumonia [Recovered/Resolved]
  - Gastroenteritis [Not Recovered/Not Resolved]
  - Hypokalaemia [Recovered/Resolved]
  - Influenza [Not Recovered/Not Resolved]
  - Respiratory tract infection [Not Recovered/Not Resolved]

NARRATIVE: CASE EVENT DATE: 20220329
